FAERS Safety Report 8557232 (Version 4)
Quarter: 2013Q4

REPORT INFORMATION
  Report Type: Spontaneous
  Country: GB (occurrence: GB)
  Receive Date: 20120511
  Receipt Date: 20131014
  Transmission Date: 20140711
  Serious: Yes (Life-Threatening, Other)
  Sender: FDA-Public Use
  Company Number: GB-UCBSA-056713

PATIENT
  Age: 49 Year
  Sex: Female

DRUGS (11)
  1. VIMPAT [Suspect]
     Indication: PARTIAL SEIZURES
     Dosage: DAILY DOSE : 100MG
  2. VIMPAT [Suspect]
     Indication: PARTIAL SEIZURES
     Route: 048
     Dates: start: 201008, end: 20110817
  3. VIMPAT [Suspect]
     Indication: PARTIAL SEIZURES
  4. VIMPAT [Suspect]
     Indication: PARTIAL SEIZURES
     Dosage: INCREASING DOSE BY 50MG EVERY WEEK
  5. VIMPAT [Suspect]
     Indication: PARTIAL SEIZURES
     Dosage: DAILY DOSE: 50MG/DAY
  6. LEVETIRACETAM [Concomitant]
     Dosage: DAILY DOSE : 4000MG
  7. LORAZEPAM [Concomitant]
     Indication: CONVULSION
     Route: 042
  8. CARBAMAZEPINE [Concomitant]
     Dosage: 600MG DAILY
     Dates: start: 2008
  9. LEVOTHYROXINE [Concomitant]
     Indication: HYPOTHYROIDISM
     Dosage: DAILY DOSE: 125?G/DAY
  10. ZONISAMIDE [Concomitant]
     Dosage: DAILY DOSE: 600MG
  11. ZONISAMIDE [Concomitant]
     Dosage: DOSE TAPERED AT A RATE OF 50MG EVERY WEEK

REACTIONS (7)
  - Sick sinus syndrome [Recovered/Resolved]
  - Electrocardiogram abnormal [Unknown]
  - Sinus arrest [Recovered/Resolved]
  - Sinus bradycardia [Recovered/Resolved]
  - Nodal rhythm [Recovered/Resolved]
  - Sinus tachycardia [Recovered/Resolved]
  - Ventricular extrasystoles [Recovered/Resolved]
